FAERS Safety Report 7323335-1 (Version None)
Quarter: 2011Q1

REPORT INFORMATION
  Report Type: 
  Country: None (occurrence: None)
  Receive Date: 20110217
  Receipt Date: 20110207
  Transmission Date: 20110831
  Serious: Yes (Other)
  Sender: FDA-Public Use
  Company Number: JHP201100030

PATIENT
  Age: 45 Year
  Sex: Male

DRUGS (3)
  1. CORTICOSTEROIDS [Concomitant]
  2. BRONCHODILATORS [Concomitant]
  3. EPINEPHRINE [Suspect]
     Indication: HYPERSENSITIVITY
     Dosage: DILUTE SOLUTION, INTRAVENOUS
     Route: 042

REACTIONS (4)
  - BLOOD LACTATE DEHYDROGENASE INCREASED [None]
  - ECG SIGNS OF MYOCARDIAL ISCHAEMIA [None]
  - ASPARTATE AMINOTRANSFERASE INCREASED [None]
  - ACUTE CORONARY SYNDROME [None]
